FAERS Safety Report 17481864 (Version 2)
Quarter: 2020Q1

REPORT INFORMATION
  Report Type: Spontaneous
  Country: US (occurrence: US)
  Receive Date: 20200302
  Receipt Date: 20200320
  Transmission Date: 20200409
  Serious: Yes (Hospitalization, Other)
  Sender: FDA-Public Use
  Company Number: US-SA-2020SA049706

PATIENT
  Age: 46 Year
  Sex: Male
  Weight: 112 kg

DRUGS (25)
  1. COREG [Concomitant]
     Active Substance: CARVEDILOL
     Indication: FABRY^S DISEASE
     Dosage: 2 DF, BID (25 MG DAILY WITH MEALS
     Route: 048
  2. COZAAR [Concomitant]
     Active Substance: LOSARTAN POTASSIUM
     Indication: FABRY^S DISEASE
     Dosage: 2 DF, (100 MG) QD
     Route: 048
  3. CRESTOR [Concomitant]
     Active Substance: ROSUVASTATIN CALCIUM
     Indication: AORTIC ROOT ENLARGEMENT PROCEDURE
  4. FLUOXETINE [Suspect]
     Active Substance: FLUOXETINE HYDROCHLORIDE
     Route: 065
  5. WELLBUTRIN [Suspect]
     Active Substance: BUPROPION HYDROCHLORIDE
     Route: 065
  6. ASPIRIN [ACETYLSALICYLIC ACID] [Concomitant]
     Active Substance: ASPIRIN
     Dosage: 81 MG
     Route: 048
  7. TACROLIMUS. [Concomitant]
     Active Substance: TACROLIMUS
     Indication: KIDNEY TRANSPLANT REJECTION
  8. VIAGRA [Concomitant]
     Active Substance: SILDENAFIL CITRATE
     Indication: SEXUAL DYSFUNCTION
     Dosage: 1 DF (1 HOUR PRIOR TO SEXUAL ACTIVITY), PRN
     Route: 048
  9. CRESTOR [Concomitant]
     Active Substance: ROSUVASTATIN CALCIUM
     Indication: FABRY^S DISEASE
     Dosage: 1 DF, QD
     Route: 048
  10. SUDAFED [XYLOMETAZOLINE HYDROCHLORIDE] [Suspect]
     Active Substance: XYLOMETAZOLINE HYDROCHLORIDE
     Route: 065
  11. CARDURA [Concomitant]
     Active Substance: DOXAZOSIN MESYLATE
     Indication: BENIGN PROSTATIC HYPERPLASIA
     Dosage: 1 DF, QD DAILY AT BEDTIME
     Route: 048
  12. NEURONTIN [Concomitant]
     Active Substance: GABAPENTIN
     Indication: HEADACHE
     Dosage: 2 DF (200 MG), TID DAILY
     Route: 048
  13. DEPO TESTOSTERONE [Concomitant]
     Active Substance: TESTOSTERONE
     Indication: TESTICULAR DISORDER
     Dosage: 1.5 ML (150 MG), QOW (EVERY 14 DAYS)
     Route: 030
  14. PREDNISONE. [Concomitant]
     Active Substance: PREDNISONE
     Indication: KIDNEY TRANSPLANT REJECTION
     Dosage: 1 DF EVERY 48 HOURS
     Route: 048
  15. TACROLIMUS. [Concomitant]
     Active Substance: TACROLIMUS
     Indication: RENAL TRANSPLANT
     Dosage: 0.5 MG, BID DAILY (1 MG PO IN THE MORNING AND 0.5 MG PO IN THE EVENING
     Route: 048
  16. BENADRYL [Concomitant]
     Active Substance: DIPHENHYDRAMINE HYDROCHLORIDE
     Indication: PREMEDICATION
     Dosage: 25 MG, QOW
     Route: 048
  17. CRESTOR [Concomitant]
     Active Substance: ROSUVASTATIN CALCIUM
     Indication: BLOOD CHOLESTEROL INCREASED
  18. TRAZODONE [Suspect]
     Active Substance: TRAZODONE HYDROCHLORIDE
     Route: 065
  19. PROCARDIA [Concomitant]
     Active Substance: NIFEDIPINE
     Indication: HYPERTENSION
     Dosage: 1 DF, BID DAILY
     Route: 048
  20. COZAAR [Concomitant]
     Active Substance: LOSARTAN POTASSIUM
     Indication: CEREBRAL ISCHAEMIA
  21. MULTIVITAMINS [VITAMINS NOS] [Concomitant]
     Active Substance: VITAMINS
     Dosage: 1 DF, QD
     Route: 048
  22. CELLCEPT [Concomitant]
     Active Substance: MYCOPHENOLATE MOFETIL\MYCOPHENOLATE MOFETIL HYDROCHLORIDE
     Dosage: 1000 MG, BID DAILY
     Route: 048
  23. FABRAZYME [Suspect]
     Active Substance: AGALSIDASE BETA
     Dosage: 90 MG (35 MG INJECTION), QOW (EVERY 14 DAYS)
     Route: 041
  24. ELAVIL [Concomitant]
     Active Substance: AMITRIPTYLINE HYDROCHLORIDE
     Dosage: 10 MG, HS (AT BED TIME DAILY)
     Route: 048
  25. COZAAR [Concomitant]
     Active Substance: LOSARTAN POTASSIUM
     Indication: AORTIC ANEURYSM

REACTIONS (16)
  - Dysarthria [Recovered/Resolved]
  - General physical health deterioration [Recovered/Resolved]
  - Delirium [Recovered/Resolved]
  - Carotid artery stenosis [Unknown]
  - Cerebrovascular accident [Recovered/Resolved]
  - Cerebral arteriosclerosis [Unknown]
  - Cerebral haemorrhage [Recovered/Resolved]
  - Nausea [Recovered/Resolved]
  - Blood glucose increased [Unknown]
  - Basilar artery aneurysm [Unknown]
  - Aphasia [Recovered/Resolved]
  - Facial paralysis [Recovered/Resolved]
  - Headache [Recovered/Resolved]
  - Hypertension [Unknown]
  - Confusional state [Recovered/Resolved]
  - Disorientation [Recovered/Resolved]

NARRATIVE: CASE EVENT DATE: 201911
